FAERS Safety Report 9508723 (Version 1)
Quarter: 2013Q1

REPORT INFORMATION
  Report Type: Spontaneous
  Country: US (occurrence: None)
  Receive Date: 20130305
  Receipt Date: 20130305
  Transmission Date: 20140127
  Serious: Yes (Other)
  Sender: FDA-Public Use
  Company Number: 163-21880-12090721

PATIENT
  Age: 64 Year
  Sex: Female
  Weight: 66.68 kg

DRUGS (8)
  1. REVLIMID [Suspect]
     Indication: MYELODYSPLASTIC SYNDROME
     Route: 048
     Dates: start: 20060106
  2. EFFEXOR(VENLAFAXINE HYDROCHLORIDE) [Concomitant]
  3. 3)?FENTANYL(FENTANYL) [Concomitant]
  4. 3)?LEVOTHYROXINE(LEVOTHYROXINE) [Concomitant]
  5. 3)?LOMOTIL(LOMOTIL) [Concomitant]
  6. VITAMINS [Concomitant]
  7. TAMADOL(TRAMADOL HYDROCHLORIDE) [Concomitant]
  8. TRAZODONE(TRAZODONE) [Concomitant]

REACTIONS (1)
  - Laboratory test abnormal [None]
